FAERS Safety Report 9680775 (Version 1)
Quarter: 2013Q4

REPORT INFORMATION
  Report Type: Spontaneous
  Country: US (occurrence: None)
  Receive Date: 20131108
  Receipt Date: 20131108
  Transmission Date: 20140711
  Serious: Yes (Hospitalization)
  Sender: FDA-Public Use
  Company Number: None

PATIENT
  Age: 66 Year
  Sex: Male

DRUGS (1)
  1. AFINITOR 5MG NOVARTIS [Suspect]
     Indication: RENAL CANCER
     Dosage: 10 MG
     Route: 048
     Dates: start: 20130506

REACTIONS (5)
  - Intestinal obstruction [None]
  - Pneumonia aspiration [None]
  - Dizziness [None]
  - Nausea [None]
  - Tongue disorder [None]
